FAERS Safety Report 7488894-7 (Version None)
Quarter: 2011Q2

REPORT INFORMATION
  Report Type: 
  Country: None (occurrence: None)
  Receive Date: 20110518
  Receipt Date: 20110503
  Transmission Date: 20111010
  Serious: Yes (Other)
  Sender: FDA-Public Use
  Company Number: US-UCBSA-032342

PATIENT
  Sex: Female
  Weight: 120 kg

DRUGS (10)
  1. PAXIL [Concomitant]
     Indication: DEPRESSION
     Route: 048
     Dates: start: 20110401
  2. CHANTIX [Suspect]
     Indication: TOBACCO USER
     Route: 048
     Dates: start: 20110301, end: 20110101
  3. CHANTIX [Suspect]
     Route: 048
     Dates: start: 20110101, end: 20110424
  4. NEXIUM [Concomitant]
     Indication: SURGERY
     Route: 048
  5. MULTI-VITAMINS [Concomitant]
  6. LORTAB [Suspect]
     Indication: BONE PAIN
     Route: 048
  7. LISINOPRIL [Concomitant]
     Indication: BLOOD PRESSURE
  8. SEROQUEL XR [Suspect]
     Indication: DEPRESSION
     Route: 048
     Dates: start: 20110301
  9. SEROQUEL [Suspect]
     Indication: DEPRESSION
     Route: 048
     Dates: end: 20110301
  10. TRIAMTERENE AND HYDROCHLOROTHIAZIDE [Concomitant]
     Indication: BLOOD PRESSURE
     Dosage: DOSE : 37.5/25 MG DAILY

REACTIONS (6)
  - MEMORY IMPAIRMENT [None]
  - PANIC DISORDER [None]
  - GINGIVAL INFECTION [None]
  - AGITATION [None]
  - INSOMNIA [None]
  - NERVOUSNESS [None]
